FAERS Safety Report 11917453 (Version 1)
Quarter: 2016Q1

REPORT INFORMATION
  Report Type: Report from Study
  Country: DE (occurrence: DE)
  Receive Date: 20160114
  Receipt Date: 20160114
  Transmission Date: 20160526
  Serious: Yes (Hospitalization)
  Sender: FDA-Public Use
  Company Number: DE-BIOGEN-2015BI157105

PATIENT
  Age: 40 Year
  Sex: Female
  Weight: 65 kg

DRUGS (1)
  1. BG00012 [Suspect]
     Active Substance: DIMETHYL FUMARATE
     Indication: RELAPSING-REMITTING MULTIPLE SCLEROSIS
     Route: 048
     Dates: start: 20150318

REACTIONS (1)
  - Hydronephrosis [Recovered/Resolved]

NARRATIVE: CASE EVENT DATE: 20151014
